FAERS Safety Report 13014202 (Version 1)
Quarter: 2016Q4

REPORT INFORMATION
  Report Type: Spontaneous
  Country: BR (occurrence: BR)
  Receive Date: 20161209
  Receipt Date: 20161209
  Transmission Date: 20170207
  Serious: Yes (Other)
  Sender: FDA-Public Use
  Company Number: BR-ABBVIE-16P-020-1805875-00

PATIENT
  Age: 44 Year
  Sex: Male
  Weight: 105 kg

DRUGS (4)
  1. DIVALPROEX SODIUM. [Suspect]
     Active Substance: DIVALPROEX SODIUM
     Indication: SEIZURE
     Route: 048
     Dates: start: 20161128
  2. NAPROXEN SODIUM W/SUMATRIPTAN SUCCINATE [Concomitant]
     Indication: MIGRAINE
     Dosage: FORM STRENGTH: ^50 + 500MG^; FREQUENCY: WHEN HAVE MIGRAINE
     Route: 048
     Dates: start: 20161129
  3. ALPRAZOLAM. [Concomitant]
     Active Substance: ALPRAZOLAM
     Indication: SEDATIVE THERAPY
     Dosage: DAILY DOSE: 1MG; NIGHT
     Route: 048
     Dates: start: 20161129
  4. DEXAMETHASONE. [Concomitant]
     Active Substance: DEXAMETHASONE
     Indication: PRODUCT USED FOR UNKNOWN INDICATION
     Dosage: DAILY DOSE: 8MG (4 MG BEFORE BREAKFAST/4 MG AFTER DINNER)
     Route: 048
     Dates: start: 20161129

REACTIONS (7)
  - Speech disorder [Recovering/Resolving]
  - Memory impairment [Recovering/Resolving]
  - Eye movement disorder [Not Recovered/Not Resolved]
  - Headache [Not Recovered/Not Resolved]
  - Muscle rigidity [Not Recovered/Not Resolved]
  - Feeling abnormal [Unknown]
  - Confusional state [Recovering/Resolving]

NARRATIVE: CASE EVENT DATE: 20161129
